FAERS Safety Report 13543783 (Version 1)
Quarter: 2017Q2

REPORT INFORMATION
  Report Type: Spontaneous
  Country: US (occurrence: US)
  Receive Date: 20170515
  Receipt Date: 20170515
  Transmission Date: 20170830
  Serious: No
  Sender: FDA-Public Use
  Company Number: US-TEVA-706488USA

PATIENT
  Sex: Male

DRUGS (1)
  1. SULINDAC. [Suspect]
     Active Substance: SULINDAC
     Route: 065

REACTIONS (1)
  - Drug hypersensitivity [Unknown]
